FAERS Safety Report 9966072 (Version 1)
Quarter: 2014Q1

REPORT INFORMATION
  Report Type: Report from Study
  Country: US (occurrence: US)
  Receive Date: 20140305
  Receipt Date: 20140305
  Transmission Date: 20141002
  Serious: No
  Sender: FDA-Public Use
  Company Number: US-ABBVIE-13P-163-1122051-00

PATIENT
  Sex: Female
  Weight: 83.54 kg

DRUGS (6)
  1. HUMIRA [Suspect]
     Indication: RHEUMATOID ARTHRITIS
     Dates: start: 2012, end: 2012
  2. PREDNISONE [Concomitant]
     Indication: ASTHMA
  3. METHOTREXATE [Concomitant]
     Indication: RHEUMATOID ARTHRITIS
  4. IRON [Concomitant]
     Indication: IRON DEFICIENCY
  5. UNNAMED MEDICATION [Concomitant]
     Indication: BLOOD CHOLESTEROL INCREASED
  6. UNNAMED MEDICATION [Concomitant]
     Indication: GOUT

REACTIONS (4)
  - Mobility decreased [Not Recovered/Not Resolved]
  - Rheumatoid arthritis [Not Recovered/Not Resolved]
  - Pain [Not Recovered/Not Resolved]
  - Middle insomnia [Not Recovered/Not Resolved]
